FAERS Safety Report 21789690 (Version 1)
Quarter: 2022Q4

REPORT INFORMATION
  Report Type: Spontaneous
  Country: US (occurrence: None)
  Receive Date: 20221228
  Receipt Date: 20221228
  Transmission Date: 20230113
  Serious: Yes (Hospitalization)
  Sender: FDA-Public Use
  Company Number: None

PATIENT
  Sex: Male

DRUGS (2)
  1. TEPMETKO [Suspect]
     Active Substance: TEPOTINIB HYDROCHLORIDE
     Indication: Lung neoplasm malignant
     Dosage: FREQUENCY : DAILY;?
     Route: 048
     Dates: start: 20221201
  2. TEPMETKO [Suspect]
     Active Substance: TEPOTINIB HYDROCHLORIDE
     Indication: Bronchial carcinoma

REACTIONS (9)
  - Product use complaint [None]
  - Foreign body in throat [None]
  - Hypotension [None]
  - Pyrexia [None]
  - Peripheral swelling [None]
  - Pain [None]
  - Feeling abnormal [None]
  - Abdominal discomfort [None]
  - Palpitations [None]
